FAERS Safety Report 8321726-3 (Version None)
Quarter: 2012Q2

REPORT INFORMATION
  Report Type: 
  Country: None (occurrence: None)
  Receive Date: 20120430
  Receipt Date: 20120426
  Transmission Date: 20120825
  Serious: Yes (Life-Threatening)
  Sender: FDA-Public Use
  Company Number: IT-TEVA-335398ISR

PATIENT
  Sex: Male

DRUGS (1)
  1. LEVOFLOXACIN [Suspect]

REACTIONS (1)
  - HYPOGLYCAEMIC COMA [None]
